FAERS Safety Report 9081155 (Version 2)
Quarter: 2013Q2

REPORT INFORMATION
  Report Type: Spontaneous
  Country: US (occurrence: US)
  Receive Date: 20130218
  Receipt Date: 20130409
  Transmission Date: 20140414
  Serious: No
  Sender: FDA-Public Use
  Company Number: US-PFIZER INC-2013059489

PATIENT
  Age: 44 Year
  Sex: Female
  Weight: 79.3 kg

DRUGS (3)
  1. ADVIL ALLERGY AND CONGESTION RELIEF [Suspect]
     Indication: SINUS DISORDER
     Dosage: UNK, EVERY 4 HRS
     Route: 048
     Dates: start: 20130213
  2. ADVIL ALLERGY AND CONGESTION RELIEF [Suspect]
     Indication: NASOPHARYNGITIS
  3. HYDROCHLOROTHIAZIDE [Concomitant]
     Indication: HYPERTENSION
     Dosage: UNK

REACTIONS (6)
  - Drug ineffective [Not Recovered/Not Resolved]
  - Dizziness [Not Recovered/Not Resolved]
  - Nasal congestion [Not Recovered/Not Resolved]
  - Headache [Not Recovered/Not Resolved]
  - Dyspnoea [Not Recovered/Not Resolved]
  - Rhinorrhoea [Not Recovered/Not Resolved]
